FAERS Safety Report 7981609-5 (Version None)
Quarter: 2011Q4

REPORT INFORMATION
  Report Type: 
  Country: None (occurrence: None)
  Receive Date: 20111213
  Receipt Date: 20111128
  Transmission Date: 20120403
  Serious: Yes (Hospitalization, Other)
  Sender: FDA-Public Use
  Company Number: IMP_05471_2011

PATIENT
  Age: 89 Year
  Sex: Male

DRUGS (2)
  1. HYDROXYCHLOROQUINE SULFATE [Concomitant]
  2. CHLOROQUINE 500 MG [Suspect]
     Indication: SCLERODERMA
     Dosage: 500 MG 3X/WEEK

REACTIONS (7)
  - DYSPHAGIA [None]
  - DYSARTHRIA [None]
  - WEIGHT DECREASED [None]
  - PNEUMONIA ASPIRATION [None]
  - MUSCULAR WEAKNESS [None]
  - BLOOD CREATINE PHOSPHOKINASE INCREASED [None]
  - MYOPATHY TOXIC [None]
